FAERS Safety Report 12578872 (Version 3)
Quarter: 2016Q3

REPORT INFORMATION
  Report Type: Spontaneous
  Country: US (occurrence: US)
  Receive Date: 20160721
  Receipt Date: 20160831
  Transmission Date: 20161109
  Serious: No
  Sender: FDA-Public Use
  Company Number: US-PFIZER INC-2016346842

PATIENT
  Age: 75 Year
  Sex: Male

DRUGS (1)
  1. SUTENT [Suspect]
     Active Substance: SUNITINIB MALATE
     Indication: NEOPLASM MALIGNANT
     Dosage: 50 MG, 1X/DAY, FOR 28 DAYS
     Route: 048
     Dates: start: 20160607

REACTIONS (4)
  - Diarrhoea [Unknown]
  - Neoplasm malignant [Unknown]
  - Disease progression [Unknown]
  - Dysgeusia [Unknown]
